FAERS Safety Report 12481034 (Version 2)
Quarter: 2016Q3

REPORT INFORMATION
  Report Type: Spontaneous
  Country: JP (occurrence: JP)
  Receive Date: 20160620
  Receipt Date: 20160725
  Transmission Date: 20161109
  Serious: Yes (Hospitalization, Other)
  Sender: FDA-Public Use
  Company Number: JP-PFIZER INC-2016301899

PATIENT
  Age: 74 Year
  Sex: Male

DRUGS (4)
  1. CILOSTAZOL. [Suspect]
     Active Substance: CILOSTAZOL
     Indication: THROMBOANGIITIS OBLITERANS
     Dosage: 100 MG, 2X/DAY
     Route: 048
     Dates: start: 20160322
  2. CHAMPIX [Suspect]
     Active Substance: VARENICLINE TARTRATE
     Indication: NICOTINE DEPENDENCE
     Dosage: UNK UNK, 2X/DAY
     Route: 048
     Dates: start: 20160323
  3. BERAPROST SODIUM [Suspect]
     Active Substance: BERAPROST SODIUM
     Indication: THROMBOANGIITIS OBLITERANS
     Dosage: 20 UG, 3X/DAY
     Route: 048
     Dates: start: 20160322
  4. CHAMPIX [Suspect]
     Active Substance: VARENICLINE TARTRATE
     Dosage: 1 MG, 2X/DAY
     Route: 048
     Dates: end: 20160604

REACTIONS (3)
  - Interstitial lung disease [Recovering/Resolving]
  - Silicosis [Unknown]
  - Condition aggravated [Unknown]

NARRATIVE: CASE EVENT DATE: 20160614
